FAERS Safety Report 18443822 (Version 2)
Quarter: 2020Q4

REPORT INFORMATION
  Report Type: Report from Study
  Country: PL (occurrence: PL)
  Receive Date: 20201030
  Receipt Date: 20201208
  Transmission Date: 20210114
  Serious: Yes (Death)
  Sender: FDA-Public Use
  Company Number: PL-REGENERON PHARMACEUTICALS, INC.-2020-85575

PATIENT

DRUGS (18)
  1. EYLEA [Suspect]
     Active Substance: AFLIBERCEPT
     Dosage: 50 ?L, TOTAL EYLEA DOSE AND LAST DOSE WERE NOT REPORTED
     Route: 031
     Dates: start: 20180116
  2. EYLEA [Suspect]
     Active Substance: AFLIBERCEPT
     Dosage: 50 ?L, TOTAL EYLEA DOSE AND LAST DOSE WERE NOT REPORTED
     Route: 031
     Dates: start: 10180717
  3. EYLEA [Suspect]
     Active Substance: AFLIBERCEPT
     Dosage: 50 ?L, TOTAL EYLEA DOSE AND LAST DOSE WERE NOT REPORTED
     Route: 031
     Dates: start: 20180103
  4. EYLEA [Suspect]
     Active Substance: AFLIBERCEPT
     Dosage: 50 ?L, TOTAL EYLEA DOSE AND LAST DOSE WERE NOT REPORTED
     Route: 031
     Dates: start: 20180515
  5. EYLEA [Suspect]
     Active Substance: AFLIBERCEPT
     Dosage: 50 ?L, TOTAL EYLEA DOSE AND LAST DOSE WERE NOT REPORTED
     Route: 031
     Dates: start: 20181108
  6. EYLEA [Suspect]
     Active Substance: AFLIBERCEPT
     Dosage: 50 ?L, TOTAL EYLEA DOSE AND LAST DOSE WERE NOT REPORTED
     Route: 031
     Dates: start: 20190525
  7. EYLEA [Suspect]
     Active Substance: AFLIBERCEPT
     Indication: NEOVASCULAR AGE-RELATED MACULAR DEGENERATION
     Dosage: 50 ?L, TOTAL EYLEA DOSE AND LAST DOSE WERE NOT REPORTED
     Route: 031
     Dates: start: 20171116
  8. EYLEA [Suspect]
     Active Substance: AFLIBERCEPT
     Dosage: 50 ?L, TOTAL EYLEA DOSE AND LAST DOSE WERE NOT REPORTED
     Route: 031
     Dates: start: 20171214
  9. EYLEA [Suspect]
     Active Substance: AFLIBERCEPT
     Dosage: 50 ?L, TOTAL EYLEA DOSE AND LAST DOSE WERE NOT REPORTED
     Route: 031
     Dates: start: 20190819
  10. EYLEA [Suspect]
     Active Substance: AFLIBERCEPT
     Dosage: 50 ?L, TOTAL EYLEA DOSE AND LAST DOSE WERE NOT REPORTED
     Route: 031
     Dates: start: 20190203
  11. EYLEA [Suspect]
     Active Substance: AFLIBERCEPT
     Dosage: 50 ?L, TOTAL EYLEA DOSE AND LAST DOSE WERE NOT REPORTED
     Route: 031
     Dates: start: 20200720
  12. EYLEA [Suspect]
     Active Substance: AFLIBERCEPT
     Dosage: 2 UNK
     Route: 031
     Dates: start: 20180315
  13. EYLEA [Suspect]
     Active Substance: AFLIBERCEPT
     Dosage: 50 ?L, TOTAL EYLEA DOSE AND LAST DOSE WERE NOT REPORTED
     Route: 031
     Dates: start: 20190624
  14. EYLEA [Suspect]
     Active Substance: AFLIBERCEPT
     Dosage: 50 ?L, TOTAL EYLEA DOSE AND LAST DOSE WERE NOT REPORTED
     Route: 031
     Dates: start: 20180911
  15. EYLEA [Suspect]
     Active Substance: AFLIBERCEPT
     Dosage: 50 ?L, TOTAL EYLEA DOSE AND LAST DOSE WERE NOT REPORTED
     Route: 031
     Dates: start: 20190429
  16. EYLEA [Suspect]
     Active Substance: AFLIBERCEPT
     Dosage: 50 ?L, TOTAL EYLEA DOSE AND LAST DOSE WERE NOT REPORTED
     Route: 031
     Dates: start: 20191014
  17. EYLEA [Suspect]
     Active Substance: AFLIBERCEPT
     Dosage: 50 ?L, TOTAL EYLEA DOSE AND LAST DOSE WERE NOT REPORTED
     Route: 031
     Dates: start: 20191209
  18. EYLEA [Suspect]
     Active Substance: AFLIBERCEPT
     Dosage: 50 ?L, TOTAL EYLEA DOSE AND LAST DOSE WERE NOT REPORTED
     Route: 031
     Dates: start: 20200824

REACTIONS (1)
  - Death [Fatal]

NARRATIVE: CASE EVENT DATE: 20201020
